FAERS Safety Report 12170548 (Version 1)
Quarter: 2016Q1

REPORT INFORMATION
  Report Type: Spontaneous
  Country: US (occurrence: None)
  Receive Date: 20160310
  Receipt Date: 20160310
  Transmission Date: 20160526
  Serious: Yes (Other)
  Sender: FDA-Public Use
  Company Number: None

PATIENT
  Age: 64 Year
  Sex: Female

DRUGS (1)
  1. XELODA [Suspect]
     Active Substance: CAPECITABINE
     Indication: UTERINE CANCER
     Dosage: 2 TABLETS BID 2WKS ON 1 WK OFF
     Dates: start: 20151203

REACTIONS (1)
  - Off label use [None]

NARRATIVE: CASE EVENT DATE: 20151203
